FAERS Safety Report 11008736 (Version 1)
Quarter: 2015Q2

REPORT INFORMATION
  Report Type: Spontaneous
  Country: US (occurrence: None)
  Receive Date: 20150409
  Receipt Date: 20150409
  Transmission Date: 20150821
  Serious: Yes (Other)
  Sender: FDA-Public Use
  Company Number: None

PATIENT
  Age: 82 Year
  Sex: Female
  Weight: 66.23 kg

DRUGS (1)
  1. LEVAQUIN [Suspect]
     Active Substance: LEVOFLOXACIN
     Indication: BRONCHITIS
     Dosage: 1
     Route: 048
     Dates: start: 20150218, end: 20150225

REACTIONS (4)
  - Pain in extremity [None]
  - Activities of daily living impaired [None]
  - Musculoskeletal disorder [None]
  - Drug ineffective [None]

NARRATIVE: CASE EVENT DATE: 20150221
